FAERS Safety Report 7429275-1 (Version None)
Quarter: 2011Q2

REPORT INFORMATION
  Report Type: 
  Country: None (occurrence: None)
  Receive Date: 20110421
  Receipt Date: 20110418
  Transmission Date: 20111010
  Serious: Yes (Hospitalization)
  Sender: FDA-Public Use
  Company Number: US-ACTELION-A-NJ2011-46121

PATIENT

DRUGS (2)
  1. VENTAVIS [Suspect]
     Indication: PULMONARY ARTERIAL HYPERTENSION
     Dosage: UNK
     Route: 055
     Dates: start: 20100304
  2. REVATIO [Concomitant]

REACTIONS (7)
  - AMMONIA INCREASED [None]
  - LOSS OF CONSCIOUSNESS [None]
  - TRANSFUSION [None]
  - ANAEMIA [None]
  - FALL [None]
  - BLOOD GLUCOSE ABNORMAL [None]
  - LIVER DISORDER [None]
